FAERS Safety Report 7543524-0 (Version None)
Quarter: 2011Q2

REPORT INFORMATION
  Report Type: 
  Country: None (occurrence: None)
  Receive Date: 20110613
  Receipt Date: 20011128
  Transmission Date: 20111010
  Serious: Yes (Hospitalization)
  Sender: FDA-Public Use
  Company Number: PHBS2001VE13570

PATIENT
  Sex: Male

DRUGS (2)
  1. STARLIX [Suspect]
     Dosage: 120 MG, UNK
  2. GLYBURIDE [Concomitant]

REACTIONS (2)
  - HYPERGLYCAEMIA [None]
  - HAND FRACTURE [None]
